FAERS Safety Report 16685425 (Version 1)
Quarter: 2019Q3

REPORT INFORMATION
  Report Type: Report from Study
  Country: ZA (occurrence: ZA)
  Receive Date: 20190809
  Receipt Date: 20190809
  Transmission Date: 20191004
  Serious: Yes (Hospitalization, Disabling)
  Sender: FDA-Public Use
  Company Number: ZA-SA-2019SA045457

PATIENT
  Age: 45 Year
  Sex: Female

DRUGS (10)
  1. OPTISULIN (INSULIN GLARGINE) [Suspect]
     Active Substance: INSULIN GLARGINE
     Dosage: 56 U, HS
     Dates: start: 20190116
  2. GLUCOPHAGE [Concomitant]
     Active Substance: METFORMIN HYDROCHLORIDE
     Dosage: 1000 MG, BID
     Dates: start: 20190117
  3. DOPAQUEL [Concomitant]
     Active Substance: QUETIAPINE
     Dosage: 50 MG, HS
     Dates: start: 20180117
  4. NO STUDY DRUG GIVEN [Suspect]
     Active Substance: INVESTIGATIONAL PRODUCT
  5. ASPEN [ACETYLSALICYLIC ACID] [Concomitant]
     Dosage: 7 MG, HS
     Dates: start: 20180117
  6. OPTISULIN (INSULIN GLARGINE) [Suspect]
     Active Substance: INSULIN GLARGINE
     Dosage: 43 UNK
  7. PREMARIN [Concomitant]
     Active Substance: ESTROGENS, CONJUGATED
     Dosage: 0.625 MG, QD
     Dates: start: 20180117
  8. MIRTAZAPINE. [Concomitant]
     Active Substance: MIRTAZAPINE
     Dosage: 7 MG, HS
     Dates: start: 20180117
  9. TOUJEO [Suspect]
     Active Substance: INSULIN GLARGINE
  10. DYNA SERTRALINE [Concomitant]
     Dosage: 150 MG, QD
     Dates: start: 20180117

REACTIONS (11)
  - Diarrhoea [Not Recovered/Not Resolved]
  - Back pain [Unknown]
  - Cystitis [Not Recovered/Not Resolved]
  - Stress [Unknown]
  - Headache [Unknown]
  - Migraine [Not Recovered/Not Resolved]
  - Abdominal distension [Not Recovered/Not Resolved]
  - Glycosylated haemoglobin decreased [Recovered/Resolved]
  - Weight decreased [Recovered/Resolved]
  - Pain [Unknown]
  - Glycosylated haemoglobin increased [Unknown]

NARRATIVE: CASE EVENT DATE: 20190714
